APPROVED DRUG PRODUCT: TRIESENCE
Active Ingredient: TRIAMCINOLONE ACETONIDE
Strength: 40MG/ML (40MG/ML)
Dosage Form/Route: INJECTABLE;INTRAVITREAL
Application: N022048 | Product #001
Applicant: HARROW EYE LLC
Approved: Nov 29, 2007 | RLD: Yes | RS: Yes | Type: RX

PATENTS:
Patent 8211880 | Expires: Mar 10, 2029
Patent 8128960 | Expires: Dec 17, 2029
Patent 8211880 | Expires: Mar 10, 2029